FAERS Safety Report 5336117-7 (Version None)
Quarter: 2007Q2

REPORT INFORMATION
  Report Type: 
  Country: None (occurrence: None)
  Receive Date: 20070302
  Receipt Date: 20061113
  Transmission Date: 20071010
  Serious: No
  Sender: FDA-Public Use
  Company Number: PHEH2006US14205

PATIENT
  Sex: Male
  Weight: 68 kg

DRUGS (10)
  1. ENABLEX [Suspect]
     Indication: URGE INCONTINENCE
     Dosage: 15 MG, OD
     Dates: start: 20061026, end: 20061113
  2. SEROQUEL [Concomitant]
  3. MELOXICAM [Concomitant]
  4. GABAPENTIN [Concomitant]
  5. SERTRALINE HYDROCHLORIDE (SERTRALINE HYDROCHLORIDE) [Concomitant]
  6. CHLORPROMAZINE (CLORPROMAZINE) [Concomitant]
  7. TRAZODONE HCL [Concomitant]
  8. CLONAZEPAM [Concomitant]
  9. ARICEPT [Concomitant]
  10. BUSPAR [Concomitant]

REACTIONS (4)
  - BALANCE DISORDER [None]
  - DIZZINESS [None]
  - DRY MOUTH [None]
  - VISION BLURRED [None]
